FAERS Safety Report 14962236 (Version 2)
Quarter: 2018Q2

REPORT INFORMATION
  Report Type: Spontaneous
  Country: US (occurrence: US)
  Receive Date: 20180601
  Receipt Date: 20180628
  Transmission Date: 20180711
  Serious: Yes (Hospitalization)
  Sender: FDA-Public Use
  Company Number: US-ROCHE-2132266

PATIENT
  Age: 38 Year
  Sex: Female
  Weight: 58.11 kg

DRUGS (1)
  1. ESBRIET [Suspect]
     Active Substance: PIRFENIDONE
     Indication: IDIOPATHIC PULMONARY FIBROSIS
     Dosage: 2 PILLS 3 TIMES A DAY ;ONGOING: YES
     Route: 065
     Dates: start: 201609

REACTIONS (7)
  - Malaise [Recovering/Resolving]
  - Pain [Recovering/Resolving]
  - Pain [Recovering/Resolving]
  - Vasculitis [Unknown]
  - Pyrexia [Recovering/Resolving]
  - Influenza [Recovering/Resolving]
  - White blood cell count increased [Unknown]

NARRATIVE: CASE EVENT DATE: 201804
